FAERS Safety Report 6283646-8 (Version None)
Quarter: 2009Q3

REPORT INFORMATION
  Report Type: 
  Country: None (occurrence: None)
  Receive Date: 20090724
  Receipt Date: 20090721
  Transmission Date: 20100115
  Serious: Yes (Death, Life-Threatening, Hospitalization, Other)
  Sender: FDA-Public Use
  Company Number: PHHY2009DE27521

PATIENT
  Age: 45 Year
  Sex: Male

DRUGS (5)
  1. CYCLOSPORINE [Suspect]
     Indication: LIVER TRANSPLANT
     Dosage: UNK
  2. LINEZOLID [Concomitant]
     Dosage: UNK
  3. ANTIRETROVIRAL TREATMENT [Concomitant]
  4. ANTIBIOTICS [Concomitant]
  5. DIURETICS [Concomitant]

REACTIONS (16)
  - CHOLANGITIS SCLEROSING [None]
  - DEPRESSED LEVEL OF CONSCIOUSNESS [None]
  - ENTEROCOCCAL INFECTION [None]
  - ESCHERICHIA INFECTION [None]
  - HAEMATOMA INFECTION [None]
  - HAEMODIALYSIS [None]
  - HAEMOLYTIC ANAEMIA [None]
  - HEPATIC CIRRHOSIS [None]
  - HEPATITIS C [None]
  - INTRA-ABDOMINAL HAEMATOMA [None]
  - INTRA-ABDOMINAL HAEMORRHAGE [None]
  - MULTI-ORGAN FAILURE [None]
  - RENAL FAILURE ACUTE [None]
  - SEPSIS [None]
  - THROMBOCYTOPENIA [None]
  - THROMBOTIC THROMBOCYTOPENIC PURPURA [None]
